FAERS Safety Report 12551919 (Version 3)
Quarter: 2016Q4

REPORT INFORMATION
  Report Type: Spontaneous
  Country: US (occurrence: US)
  Receive Date: 20160713
  Receipt Date: 20161004
  Transmission Date: 20170207
  Serious: No
  Sender: FDA-Public Use
  Company Number: US-BEH-2016070606

PATIENT
  Sex: Female
  Weight: 86.17 kg

DRUGS (22)
  1. HIZENTRA [Suspect]
     Active Substance: HUMAN IMMUNOGLOBULIN G
     Indication: CONGENITAL HYPOGAMMAGLOBULINAEMIA
     Dosage: UNK
     Route: 058
  2. HIZENTRA [Suspect]
     Active Substance: HUMAN IMMUNOGLOBULIN G
     Dosage: 15 G, QW
     Route: 058
     Dates: start: 20130730
  3. EPIPEN [Concomitant]
     Active Substance: EPINEPHRINE
  4. KLONOPIN [Concomitant]
     Active Substance: CLONAZEPAM
  5. SEROQUEL [Concomitant]
     Active Substance: QUETIAPINE FUMARATE
  6. ASACOL [Concomitant]
     Active Substance: MESALAMINE
  7. DONEPEZIL. [Concomitant]
     Active Substance: DONEPEZIL
  8. SUCRALFATE. [Concomitant]
     Active Substance: SUCRALFATE
  9. PREVACID [Concomitant]
     Active Substance: LANSOPRAZOLE
  10. VESICARE [Concomitant]
     Active Substance: SOLIFENACIN SUCCINATE
  11. ESTRADIOL. [Concomitant]
     Active Substance: ESTRADIOL
  12. POTASSIUM CL [Concomitant]
     Active Substance: POTASSIUM CHLORIDE
  13. PAXIL [Concomitant]
     Active Substance: PAROXETINE HYDROCHLORIDE
  14. HIZENTRA [Suspect]
     Active Substance: HUMAN IMMUNOGLOBULIN G
     Dosage: UNK
     Route: 058
  15. HIZENTRA [Suspect]
     Active Substance: HUMAN IMMUNOGLOBULIN G
     Dosage: UNK
     Route: 058
  16. DIPHENHYDRAMINE. [Concomitant]
     Active Substance: DIPHENHYDRAMINE
  17. SINGULAIR [Concomitant]
     Active Substance: MONTELUKAST SODIUM
  18. ATENOLOL. [Concomitant]
     Active Substance: ATENOLOL
  19. SIMVASTATIN. [Concomitant]
     Active Substance: SIMVASTATIN
  20. METFORMIN [Concomitant]
     Active Substance: METFORMIN HYDROCHLORIDE
  21. FLOVENT [Concomitant]
     Active Substance: FLUTICASONE PROPIONATE
  22. VITAMIN D3 [Concomitant]
     Active Substance: CHOLECALCIFEROL

REACTIONS (2)
  - Infusion site pain [Unknown]
  - Infusion site mass [Unknown]
